FAERS Safety Report 11240560 (Version 1)
Quarter: 2015Q3

REPORT INFORMATION
  Report Type: Spontaneous
  Country: PL (occurrence: PL)
  Receive Date: 20150706
  Receipt Date: 20150706
  Transmission Date: 20151125
  Serious: Yes (Life-Threatening, Hospitalization, Other)
  Sender: FDA-Public Use
  Company Number: PL-009507513-1506POL010680

PATIENT
  Age: 22 Year
  Sex: Female
  Weight: 68 kg

DRUGS (1)
  1. NUVARING [Suspect]
     Active Substance: ETHINYL ESTRADIOL\ETONOGESTREL
     Indication: CONTRACEPTION
     Dosage: UNK
     Route: 067
     Dates: start: 201408, end: 201410

REACTIONS (6)
  - Cerebrovascular accident [Unknown]
  - Nervousness [Not Recovered/Not Resolved]
  - Mood swings [Not Recovered/Not Resolved]
  - Muscular weakness [Recovered/Resolved]
  - Headache [Not Recovered/Not Resolved]
  - Amblyopia [Recovered/Resolved]

NARRATIVE: CASE EVENT DATE: 201410
